FAERS Safety Report 6137534-8 (Version None)
Quarter: 2009Q1

REPORT INFORMATION
  Report Type: 
  Country: None (occurrence: None)
  Receive Date: 20090326
  Receipt Date: 20090319
  Transmission Date: 20090719
  Serious: Yes (Death)
  Sender: FDA-Public Use
  Company Number: 2004JP001697

PATIENT
  Age: 40 Year
  Sex: Female

DRUGS (5)
  1. PROGRAF [Suspect]
     Indication: STEM CELL TRANSPLANT
  2. PREDNISOLONE [Suspect]
     Indication: STEM CELL TRANSPLANT
  3. AZATHIOPRINE [Concomitant]
  4. MYCOPHENOLATE MOFETIL [Concomitant]
  5. CYCLOSPORINE [Concomitant]

REACTIONS (5)
  - ASPERGILLOSIS [None]
  - FASCIITIS [None]
  - MORPHOEA [None]
  - MOVEMENT DISORDER [None]
  - MULTI-ORGAN FAILURE [None]
